FAERS Safety Report 10716735 (Version 1)
Quarter: 2015Q1

REPORT INFORMATION
  Report Type: Spontaneous
  Country: US (occurrence: None)
  Receive Date: 20150115
  Receipt Date: 20150115
  Transmission Date: 20150721
  Serious: Yes (Other)
  Sender: FDA-Public Use
  Company Number: None

PATIENT
  Age: 55 Year
  Sex: Female
  Weight: 70.76 kg

DRUGS (1)
  1. NEXAVAR [Suspect]
     Active Substance: SORAFENIB
     Indication: THYROID CANCER
     Dosage: 2 PILLS TWICE DAILY TAKEN BY MOUTH
     Route: 048
     Dates: start: 20150101, end: 20150110

REACTIONS (9)
  - Paraesthesia [None]
  - Throat irritation [None]
  - Joint stiffness [None]
  - Rash [None]
  - Urticaria [None]
  - Joint swelling [None]
  - Pruritus [None]
  - Cough [None]
  - Erythema [None]

NARRATIVE: CASE EVENT DATE: 20150110
